FAERS Safety Report 19605937 (Version 3)
Quarter: 2022Q2

REPORT INFORMATION
  Report Type: Spontaneous
  Country: FR (occurrence: None)
  Receive Date: 20210723
  Receipt Date: 20220422
  Transmission Date: 20220721
  Serious: Yes (Other)
  Sender: FDA-Public Use
  Company Number: FR-ROCHE-2876521

PATIENT
  Sex: Male
  Weight: 24 kg

DRUGS (2)
  1. HEMLIBRA [Suspect]
     Active Substance: EMICIZUMAB-KXWH
     Indication: Factor VIII deficiency
     Dosage: 4 WEEKS THEN 60 MG EVERY 15 DAYS STARTING ON THE 5TH WEEK OF TREATMENT.?HEMLIBRA 72 MG EVERY 15 DAYS
     Route: 065
  2. HEMLIBRA [Suspect]
     Active Substance: EMICIZUMAB-KXWH
     Indication: Haemophilia A without inhibitors

REACTIONS (2)
  - Off label use [Unknown]
  - Haemarthrosis [Unknown]
